FAERS Safety Report 12581315 (Version 2)
Quarter: 2016Q3

REPORT INFORMATION
  Report Type: Spontaneous
  Country: US (occurrence: US)
  Receive Date: 20160721
  Receipt Date: 20160804
  Transmission Date: 20161109
  Serious: Yes (Hospitalization)
  Sender: FDA-Public Use
  Company Number: US-ACTELION-A-US2016-139297

PATIENT
  Age: 43 Year
  Sex: Female

DRUGS (2)
  1. VELETRI [Suspect]
     Active Substance: EPOPROSTENOL
     Dosage: 24.2 NG/KG, PER MIN
     Route: 042
     Dates: start: 20160229
  2. VELETRI [Suspect]
     Active Substance: EPOPROSTENOL
     Indication: PULMONARY HYPERTENSION
     Dosage: 22.5 NG/KG, PER MIN
     Route: 042
     Dates: start: 20160229

REACTIONS (2)
  - Chest pain [Unknown]
  - Fluid overload [Unknown]
